FAERS Safety Report 8996618 (Version 1)
Quarter: 2013Q1

REPORT INFORMATION
  Report Type: Spontaneous
  Country: FR (occurrence: FR)
  Receive Date: 20130104
  Receipt Date: 20130104
  Transmission Date: 20140127
  Serious: Yes (Hospitalization)
  Sender: FDA-Public Use
  Company Number: FR-SANOFI-AVENTIS-2012SA095582

PATIENT
  Age: 85 Year
  Sex: Male

DRUGS (13)
  1. LASILIX [Suspect]
     Indication: HYPERTENSION
     Route: 048
     Dates: start: 20121022, end: 20121112
  2. LASILIX [Interacting]
     Indication: HYPERTENSION
     Route: 048
     Dates: start: 20121114, end: 20121122
  3. LASILIX [Interacting]
     Indication: HYPERTENSION
     Route: 048
     Dates: start: 20121123
  4. LASILIX [Interacting]
     Indication: HYPERTENSION
     Route: 048
     Dates: start: 20121126
  5. LASILIX [Interacting]
     Indication: HYPERTENSION
     Route: 048
     Dates: start: 20121010
  6. LASILIX [Interacting]
     Indication: HYPERTENSION
     Route: 065
  7. SPIRONOLACTONE [Interacting]
     Indication: HYPERTENSION
     Route: 065
     Dates: end: 20121112
  8. RAMIPRIL [Interacting]
     Indication: HYPERTENSION
     Route: 065
     Dates: end: 20121112
  9. RAMIPRIL [Interacting]
     Indication: HYPERTENSION
     Route: 065
     Dates: start: 20121122, end: 20121122
  10. PREVISCAN [Concomitant]
     Indication: ATRIAL FIBRILLATION
     Dosage: DOSE: 10MG ONE DAY, 5 MG THE OTHER DAY IN ALTERNACE
     Route: 048
     Dates: end: 20121112
  11. TAHOR [Concomitant]
     Indication: DYSLIPIDAEMIA
     Route: 048
  12. SPIRIVA [Concomitant]
     Indication: RESPIRATORY DISORDER
     Dosage: FORM: POWDER FOR INHALATION IN CAPSULE
  13. FORADIL [Concomitant]
     Indication: RESPIRATORY DISORDER
     Route: 055
     Dates: end: 20121112

REACTIONS (5)
  - International normalised ratio increased [Recovered/Resolved]
  - Drug interaction [Unknown]
  - Renal failure acute [Recovered/Resolved]
  - Hypotension [Recovered/Resolved]
  - Hyperkalaemia [Recovered/Resolved]
